FAERS Safety Report 6743730-9 (Version None)
Quarter: 2010Q2

REPORT INFORMATION
  Report Type: 
  Country: None (occurrence: None)
  Receive Date: 20100527
  Receipt Date: 20100517
  Transmission Date: 20101027
  Serious: Yes (Hospitalization)
  Sender: FDA-Public Use
  Company Number: FR-BAYER-201025911GPV

PATIENT
  Age: 53 Year
  Sex: Female

DRUGS (1)
  1. MIRENA [Suspect]
     Indication: DRUG USE FOR UNKNOWN INDICATION
     Route: 015
     Dates: start: 20091101

REACTIONS (10)
  - ALTERED STATE OF CONSCIOUSNESS [None]
  - CEREBRAL INFARCTION [None]
  - DISORIENTATION [None]
  - EOSINOPHILIA [None]
  - INFLAMMATION [None]
  - ISCHAEMIC STROKE [None]
  - LEUKOCYTOCLASTIC VASCULITIS [None]
  - LEUKOCYTOSIS [None]
  - PYRAMIDAL TRACT SYNDROME [None]
  - QUADRIPARESIS [None]
